FAERS Safety Report 7622416-2 (Version None)
Quarter: 2011Q3

REPORT INFORMATION
  Report Type: 
  Country: None (occurrence: None)
  Receive Date: 20110720
  Receipt Date: 20110119
  Transmission Date: 20111222
  Serious: Yes (Other)
  Sender: FDA-Public Use
  Company Number: US-MYLANLABS-2011S1001382

PATIENT
  Sex: Male

DRUGS (1)
  1. TRAMADOL HCL [Suspect]
     Indication: ANXIETY
     Route: 048
     Dates: start: 20100101

REACTIONS (4)
  - DRUG INEFFECTIVE FOR UNAPPROVED INDICATION [None]
  - DRUG WITHDRAWAL SYNDROME [None]
  - ANXIETY [None]
  - DEPENDENCE [None]
